FAERS Safety Report 10261625 (Version 3)
Quarter: 2014Q3

REPORT INFORMATION
  Report Type: Spontaneous
  Country: FR (occurrence: FR)
  Receive Date: 20140626
  Receipt Date: 20140729
  Transmission Date: 20150326
  Serious: Yes (Hospitalization)
  Sender: FDA-Public Use
  Company Number: FR-PFIZER INC-2014169538

PATIENT
  Age: 39 Year
  Sex: Male

DRUGS (13)
  1. ELUDRIL [Concomitant]
  2. HIZENTRA [Concomitant]
     Active Substance: HUMAN IMMUNOGLOBULIN G
  3. ZELITREX [Concomitant]
     Active Substance: VALACYCLOVIR HYDROCHLORIDE
  4. NEORAL [Suspect]
     Active Substance: CYCLOSPORINE
     Dosage: 15 MG, 1X/DAY
     Route: 048
     Dates: start: 20130926
  5. SPIRIVA [Concomitant]
     Active Substance: TIOTROPIUM BROMIDE MONOHYDRATE
  6. TIORFAN [Concomitant]
     Active Substance: RACECADOTRIL
  7. ORACILLINE [Suspect]
     Active Substance: PENICILLIN V
     Dosage: 1000000 IU, 2X/DAY
     Route: 048
     Dates: start: 201403
  8. TRIFLUCAN [Concomitant]
     Active Substance: FLUCONAZOLE
  9. IMODIUM [Concomitant]
     Active Substance: LOPERAMIDE HYDROCHLORIDE
  10. SOLU-MEDROL [Suspect]
     Active Substance: METHYLPREDNISOLONE SODIUM SUCCINATE
     Dosage: 20 MG, 1X/DAY
     Route: 042
     Dates: start: 20130926
  11. LYRICA [Concomitant]
     Active Substance: PREGABALIN
  12. INEXIUM [Concomitant]
     Active Substance: ESOMEPRAZOLE
  13. SMECTA [Concomitant]
     Active Substance: MONTMORILLONITE

REACTIONS (2)
  - Diarrhoea [Recovering/Resolving]
  - Clostridium colitis [Recovering/Resolving]

NARRATIVE: CASE EVENT DATE: 20140318
